FAERS Safety Report 6986766-5 (Version None)
Quarter: 2010Q3

REPORT INFORMATION
  Report Type: 
  Country: None (occurrence: None)
  Receive Date: 20100915
  Receipt Date: 20090724
  Transmission Date: 20110219
  Serious: No
  Sender: FDA-Public Use
  Company Number: US-WYE-H10330909

PATIENT
  Sex: Female

DRUGS (4)
  1. PRISTIQ [Suspect]
     Indication: BIPOLAR DISORDER
     Route: 048
     Dates: start: 20090717
  2. LITHIUM CARBONATE [Concomitant]
  3. TRAZODONE HCL [Concomitant]
  4. AMITIZA [Concomitant]

REACTIONS (2)
  - CONDITION AGGRAVATED [None]
  - CONSTIPATION [None]
